FAERS Safety Report 9717460 (Version 3)
Quarter: 2015Q3

REPORT INFORMATION
  Report Type: Spontaneous
  Country: US (occurrence: US)
  Receive Date: 20131127
  Receipt Date: 20150803
  Transmission Date: 20151125
  Serious: No
  Sender: FDA-Public Use
  Company Number: US-GILEAD-2008-0019675

PATIENT
  Age: 70 Year
  Sex: Female
  Weight: 82.55 kg

DRUGS (12)
  1. REMODULIN [Concomitant]
     Active Substance: TREPROSTINIL
  2. PRILOSEC OTC [Concomitant]
     Active Substance: OMEPRAZOLE MAGNESIUM
  3. CLONAZEPAM. [Concomitant]
     Active Substance: CLONAZEPAM
  4. CYMBALTA [Concomitant]
     Active Substance: DULOXETINE HYDROCHLORIDE
  5. K-DUR [Concomitant]
     Active Substance: POTASSIUM CHLORIDE
  6. LETAIRIS [Suspect]
     Active Substance: AMBRISENTAN
     Indication: PULMONARY ARTERIAL HYPERTENSION
     Route: 048
     Dates: start: 20081210, end: 20090101
  7. SPIRONOLACTONE. [Concomitant]
     Active Substance: SPIRONOLACTONE
  8. LASIX [Concomitant]
     Active Substance: FUROSEMIDE
  9. METOPROLOL [Concomitant]
     Active Substance: METOPROLOL
  10. LYRICA [Concomitant]
     Active Substance: PREGABALIN
  11. IRON [Concomitant]
     Active Substance: IRON
  12. CELEBREX [Concomitant]
     Active Substance: CELECOXIB

REACTIONS (6)
  - Feeling abnormal [Recovered/Resolved]
  - Swelling [Recovered/Resolved]
  - Nasal congestion [Recovered/Resolved]
  - Constipation [Recovered/Resolved]
  - Weight increased [Recovered/Resolved]
  - Headache [Recovered/Resolved]

NARRATIVE: CASE EVENT DATE: 20081214
